FAERS Safety Report 19370287 (Version 1)
Quarter: 2021Q2

REPORT INFORMATION
  Report Type: Spontaneous
  Country: BR (occurrence: BR)
  Receive Date: 20210603
  Receipt Date: 20210603
  Transmission Date: 20210717
  Serious: Yes (Other)
  Sender: FDA-Public Use
  Company Number: BR-EMD SERONO-9240794

PATIENT
  Age: 44 Year
  Sex: Female

DRUGS (2)
  1. GLIFAGE XR [Suspect]
     Active Substance: METFORMIN HYDROCHLORIDE
     Indication: POLYCYSTIC OVARIES
     Route: 048
     Dates: start: 202105
  2. GLIFAGE XR [Suspect]
     Active Substance: METFORMIN HYDROCHLORIDE
     Indication: BLOOD INSULIN ABNORMAL
     Dosage: MANUFACTURE DATE: JUL 2020
     Route: 048
     Dates: start: 20210508, end: 202105

REACTIONS (3)
  - Abdominal pain [Recovered/Resolved]
  - Laryngeal oedema [Recovered/Resolved]
  - Off label use [Unknown]

NARRATIVE: CASE EVENT DATE: 20210508
